FAERS Safety Report 8394449-2 (Version None)
Quarter: 2012Q2

REPORT INFORMATION
  Report Type: 
  Country: None (occurrence: None)
  Receive Date: 20120525
  Receipt Date: 20120525
  Transmission Date: 20120825
  Serious: Yes (Other)
  Sender: FDA-Public Use
  Company Number: None

PATIENT
  Age: 64 Year
  Sex: Female
  Weight: 90.7194 kg

DRUGS (1)
  1. URIBEL 118 MG CAPSULES MISSION [Suspect]
     Indication: URINARY TRACT INFECTION
     Dosage: ONE CAPSULE 3 TIMES DAILY PO
     Route: 048
     Dates: start: 20120501, end: 20120522

REACTIONS (2)
  - DIZZINESS [None]
  - VERTIGO [None]
